FAERS Safety Report 8134575-6 (Version None)
Quarter: 2012Q1

REPORT INFORMATION
  Report Type: 
  Country: None (occurrence: None)
  Receive Date: 20120214
  Receipt Date: 20120209
  Transmission Date: 20120608
  Serious: Yes (Death, Other)
  Sender: FDA-Public Use
  Company Number: US-PFIZER INC-2012036863

PATIENT
  Sex: Male

DRUGS (1)
  1. CHANTIX [Suspect]
     Dosage: UNK
     Dates: start: 20100713

REACTIONS (4)
  - AGITATION [None]
  - DEPRESSION [None]
  - COMPLETED SUICIDE [None]
  - ABNORMAL BEHAVIOUR [None]
